FAERS Safety Report 6591661-X (Version None)
Quarter: 2010Q1

REPORT INFORMATION
  Report Type: 
  Country: None (occurrence: None)
  Receive Date: 20100221
  Receipt Date: 20090610
  Transmission Date: 20100710
  Serious: No
  Sender: FDA-Public Use
  Company Number: US-ALLERGAN-0907158US

PATIENT
  Sex: Female

DRUGS (2)
  1. BOTOX [Suspect]
     Indication: BLEPHAROSPASM
     Dosage: 50 UNITS, SINGLE
     Route: 030
     Dates: start: 20090509, end: 20090509
  2. BOTOX [Suspect]
     Route: 030
     Dates: start: 20060101

REACTIONS (1)
  - EYELID PTOSIS [None]
